FAERS Safety Report 23717807 (Version 1)
Quarter: 2024Q2

REPORT INFORMATION
  Report Type: Spontaneous
  Country: US (occurrence: None)
  Receive Date: 20240405
  Receipt Date: 20240405
  Transmission Date: 20240716
  Serious: No
  Sender: FDA-Public Use
  Company Number: None

PATIENT
  Age: 39 Year
  Sex: Female
  Weight: 167.85 kg

DRUGS (6)
  1. IMATINIB [Suspect]
     Active Substance: IMATINIB
     Indication: Gastrointestinal stromal tumour
     Dosage: 400 MG DAILY ORAL
     Route: 048
     Dates: start: 20230907
  2. IMODIUM [Concomitant]
     Active Substance: LOPERAMIDE HYDROCHLORIDE
  3. LETROZOLE [Concomitant]
     Active Substance: LETROZOLE
  4. MEDPURA BENZOYL PEROXIDE EXTERNAL GEL [Concomitant]
  5. TRIAMCINOLONE DIACETATE INJECTION [Concomitant]
  6. CBD4 FREEZE PUMP VANISH SCENT EXTERNAL CREAM [Concomitant]

REACTIONS (4)
  - Abdominal distension [None]
  - Abdominal pain [None]
  - Dyspepsia [None]
  - Gastrointestinal disorder [None]

NARRATIVE: CASE EVENT DATE: 20240329
